FAERS Safety Report 19747576 (Version 8)
Quarter: 2023Q1

REPORT INFORMATION
  Report Type: Report from Study
  Country: JP (occurrence: JP)
  Receive Date: 20210826
  Receipt Date: 20230219
  Transmission Date: 20230418
  Serious: Yes (Death, Life-Threatening, Other)
  Sender: FDA-Public Use
  Company Number: NVSJ2021JP012600

PATIENT
  Age: 53 Year
  Sex: Male
  Weight: 72 kg

DRUGS (5)
  1. KYMRIAH [Suspect]
     Active Substance: TISAGENLECLEUCEL
     Indication: High-grade B-cell lymphoma
     Dosage: TOTAL NUMBER OF CELLS ADMINISTERED: 8.6X10^9
     Route: 041
     Dates: start: 20210819
  2. IFOSFAMIDE [Concomitant]
     Active Substance: IFOSFAMIDE
     Indication: Lymphodepletion
     Dosage: 15000 MG/M2
     Route: 065
     Dates: start: 20210812
  3. CARBOPLATIN [Concomitant]
     Active Substance: CARBOPLATIN
     Indication: Lymphodepletion
     Dosage: 320 MG/M2
     Route: 065
     Dates: start: 20210813
  4. ETOPOSIDE [Concomitant]
     Active Substance: ETOPOSIDE
     Indication: Lymphodepletion
     Dosage: 300 MG/M2
     Route: 065
     Dates: start: 20210812
  5. POLATUZUMAB VEDOTIN [Concomitant]
     Active Substance: POLATUZUMAB VEDOTIN
     Indication: Lymphodepletion
     Dosage: 70 MG/M2
     Route: 065

REACTIONS (13)
  - High-grade B-cell lymphoma [Fatal]
  - Malignant neoplasm progression [Fatal]
  - Immune effector cell-associated neurotoxicity syndrome [Recovered/Resolved]
  - Depressed level of consciousness [Unknown]
  - Ventricular fibrillation [Unknown]
  - Cytokine release syndrome [Not Recovered/Not Resolved]
  - Pyrexia [Recovered/Resolved]
  - Blood pressure decreased [Unknown]
  - Hypoxia [Unknown]
  - Acute kidney injury [Not Recovered/Not Resolved]
  - White blood cell count decreased [Unknown]
  - Metabolic acidosis [Unknown]
  - Tachypnoea [Unknown]

NARRATIVE: CASE EVENT DATE: 20210819
